FAERS Safety Report 22123533 (Version 5)
Quarter: 2023Q4

REPORT INFORMATION
  Report Type: Spontaneous
  Country: CA (occurrence: None)
  Receive Date: 20230322
  Receipt Date: 20231204
  Transmission Date: 20240109
  Serious: Yes (Other)
  Sender: FDA-Public Use
  Company Number: CA-ROCHE-3312860

PATIENT
  Age: 1 Year
  Sex: Male

DRUGS (7)
  1. SOMATROPIN [Suspect]
     Active Substance: SOMATROPIN
     Indication: Short stature
     Route: 058
  2. SOMATROPIN [Suspect]
     Active Substance: SOMATROPIN
     Indication: Growth hormone deficiency
     Dosage: THERAPY DURATION: -90.0
     Route: 058
  3. SOMATROPIN [Suspect]
     Active Substance: SOMATROPIN
     Route: 058
  4. SOMATROPIN [Suspect]
     Active Substance: SOMATROPIN
     Route: 058
  5. PREDNISOLONE [Concomitant]
     Active Substance: PREDNISOLONE
     Route: 065
  6. SYNTHROID [Concomitant]
     Active Substance: LEVOTHYROXINE SODIUM
     Route: 065
  7. CHOLECALCIFEROL [Concomitant]
     Active Substance: CHOLECALCIFEROL
     Route: 065

REACTIONS (7)
  - Device defective [Unknown]
  - Device leakage [Unknown]
  - Pyrexia [Not Recovered/Not Resolved]
  - Viral infection [Not Recovered/Not Resolved]
  - Ear infection bacterial [Not Recovered/Not Resolved]
  - Cough [Not Recovered/Not Resolved]
  - Rhinorrhoea [Not Recovered/Not Resolved]
